FAERS Safety Report 8620748-2 (Version None)
Quarter: 2012Q3

REPORT INFORMATION
  Report Type: 
  Country: None (occurrence: None)
  Receive Date: 20120824
  Receipt Date: 20120817
  Transmission Date: 20120928
  Serious: Yes (Other)
  Sender: FDA-Public Use
  Company Number: US-US-EMD SERONO, INC.-7111725

PATIENT
  Sex: Female

DRUGS (1)
  1. REBIF [Suspect]
     Indication: MULTIPLE SCLEROSIS
     Route: 058
     Dates: start: 20030113, end: 20120701

REACTIONS (5)
  - PERONEAL NERVE PALSY [None]
  - INJECTION SITE PAIN [None]
  - FOOT FRACTURE [None]
  - INJECTION SITE ERYTHEMA [None]
  - NORMAL PRESSURE HYDROCEPHALUS [None]
